FAERS Safety Report 9213408 (Version 1)
Quarter: 2013Q2

REPORT INFORMATION
  Report Type: Report from Study
  Country: NZ (occurrence: NZ)
  Receive Date: 20130405
  Receipt Date: 20130405
  Transmission Date: 20140414
  Serious: Yes (Death, Hospitalization, Other)
  Sender: FDA-Public Use
  Company Number: PHHY2013NZ032963

PATIENT
  Age: 63 Year
  Sex: Male

DRUGS (6)
  1. CLOZARIL [Suspect]
     Indication: PSYCHOTIC DISORDER
     Dosage: 37.5 MG,
     Route: 048
     Dates: start: 20090213, end: 20130131
  2. ARIPIPRAZOLE [Concomitant]
     Dosage: 10 MG, MORNING
     Route: 048
     Dates: start: 20130131
  3. QUETIAPINE [Concomitant]
     Dosage: 500MG MORNING AND 50MG AT NIGHT
     Route: 048
     Dates: start: 20130131
  4. CLONAZEPAM [Concomitant]
     Dosage: 0.5 MG, TID
     Route: 048
     Dates: start: 20130131
  5. CHOLECALCIFEROL [Concomitant]
     Dosage: 1.25 MG, QMO
     Route: 048
     Dates: start: 20130131
  6. MOVICOL [Concomitant]
     Dosage: 1 DF, DAILY
     Route: 048
     Dates: start: 20130131

REACTIONS (10)
  - Pneumonia [Fatal]
  - Dementia [Fatal]
  - Blood creatinine increased [Unknown]
  - C-reactive protein increased [Unknown]
  - Gamma-glutamyltransferase increased [Unknown]
  - Aspartate aminotransferase increased [Unknown]
  - Alanine aminotransferase increased [Unknown]
  - Haemoglobin decreased [Unknown]
  - White blood cell count increased [Unknown]
  - Neutrophil count increased [Unknown]
